FAERS Safety Report 12497303 (Version 2)
Quarter: 2016Q3

REPORT INFORMATION
  Report Type: Spontaneous
  Country: CA (occurrence: CA)
  Receive Date: 20160624
  Receipt Date: 20160805
  Transmission Date: 20161109
  Serious: Yes (Life-Threatening, Hospitalization, Other)
  Sender: FDA-Public Use
  Company Number: CA-PFIZER INC-2016317575

PATIENT
  Age: 29 Year
  Sex: Female

DRUGS (2)
  1. METHOTREXATE SODIUM. [Suspect]
     Active Substance: METHOTREXATE SODIUM
     Indication: ECTOPIC PREGNANCY
     Dosage: 1 MG/KG, UNK (RECEIVED A TOTAL OF THREE DOSES)
     Route: 065
  2. LEUCOVORIN. [Concomitant]
     Active Substance: LEUCOVORIN
     Dosage: 0.1 MG/KG, UNK (RECEIVED A TOTAL OF THREE DOSES, RESCUE DOSE)
     Route: 065

REACTIONS (2)
  - Escherichia sepsis [Recovered/Resolved]
  - Exposure during pregnancy [Recovered/Resolved]
